FAERS Safety Report 7241581-2 (Version None)
Quarter: 2011Q1

REPORT INFORMATION
  Report Type: 
  Country: None (occurrence: None)
  Receive Date: 20110119
  Receipt Date: 20110119
  Transmission Date: 20110831
  Serious: Yes (Other)
  Sender: FDA-Public Use
  Company Number: None

PATIENT
  Age: 54 Year
  Sex: Male
  Weight: 102.3 kg

DRUGS (1)
  1. MEFLOQUINE HYDROCHLORIDE [Suspect]
     Indication: MALARIA PROPHYLAXIS
     Dosage: 1 TABLET (250 MG) ONCE/WEEK ORAL (047)
     Route: 048
     Dates: start: 20101219, end: 20110123

REACTIONS (2)
  - PHOTOSENSITIVITY REACTION [None]
  - RASH PRURITIC [None]
